FAERS Safety Report 8505904-6 (Version None)
Quarter: 2012Q3

REPORT INFORMATION
  Report Type: 
  Country: None (occurrence: None)
  Receive Date: 20120703
  Receipt Date: 20120628
  Transmission Date: 20120928
  Serious: Yes (Death, Hospitalization)
  Sender: FDA-Public Use
  Company Number: 2012SP036101

PATIENT
  Age: 64 Year
  Sex: Female

DRUGS (13)
  1. NEXIUM [Concomitant]
  2. ATORVASTATIN [Concomitant]
  3. SPIRIVA [Concomitant]
  4. AMIKACIN [Concomitant]
  5. ORGARAN [Suspect]
     Indication: HEPARIN-INDUCED THROMBOCYTOPENIA
     Dosage: SC
     Route: 058
     Dates: start: 20111224, end: 20111229
  6. ASPIRIN [Concomitant]
  7. NOREPINEPHRINE BITARTRATE [Concomitant]
  8. PERINDOPRIL ERBUMINE [Concomitant]
  9. LEXOMIL [Concomitant]
  10. TAZOBACTAM [Concomitant]
  11. CALCIPARINE [Concomitant]
  12. BISOPROLOL FUMARATE [Concomitant]
  13. NITROGLYCERIN [Concomitant]

REACTIONS (5)
  - MULTI-ORGAN FAILURE [None]
  - ANAEMIA [None]
  - COLITIS [None]
  - RECTAL HAEMORRHAGE [None]
  - PLATELET COUNT DECREASED [None]
